FAERS Safety Report 21431971 (Version 1)
Quarter: 2022Q4

REPORT INFORMATION
  Report Type: Spontaneous
  Country: DE (occurrence: DE)
  Receive Date: 20221009
  Receipt Date: 20221009
  Transmission Date: 20230112
  Serious: Yes (Hospitalization)
  Sender: FDA-Public Use
  Company Number: DE-ADRED-08482-01

PATIENT
  Age: 82 Year
  Sex: Male
  Weight: 95 kg

DRUGS (7)
  1. PREDNISOLONE [Suspect]
     Active Substance: PREDNISOLONE
     Indication: Product used for unknown indication
     Dosage: 5 MILLIGRAM DAILY; 5 MG, 1-0-0-0
  2. FLUTICASONE PROPIONATE\SALMETEROL XINAFOATE [Concomitant]
     Active Substance: FLUTICASONE PROPIONATE\SALMETEROL XINAFOATE
     Indication: Product used for unknown indication
     Dosage: 2 DOSAGE FORMS DAILY; 1-0-1-0
  3. ATORVASTATIN [Concomitant]
     Active Substance: ATORVASTATIN
     Indication: Product used for unknown indication
     Dosage: 20 MILLIGRAM DAILY; 20 MG, 0-0-1-0
  4. CANDESARTAN [Concomitant]
     Active Substance: CANDESARTAN
     Indication: Product used for unknown indication
     Dosage: 8 MILLIGRAM DAILY; 8 MG, 1-0-0-0
  5. HYDROCHLOROTHIAZIDE [Concomitant]
     Active Substance: HYDROCHLOROTHIAZIDE
     Indication: Product used for unknown indication
     Dosage: 25 MILLIGRAM DAILY; 25 MG, 1-0-0-0
  6. ASPIRIN [Concomitant]
     Active Substance: ASPIRIN
     Indication: Product used for unknown indication
     Dosage: 100 MILLIGRAM DAILY; 100 MG, 1-0-0-0
  7. ALBUTEROL [Concomitant]
     Active Substance: ALBUTEROL
     Indication: Product used for unknown indication
     Dosage: REQUIREMENT

REACTIONS (12)
  - Renal impairment [Unknown]
  - General physical health deterioration [Unknown]
  - Tachycardia [Unknown]
  - Electrocardiogram abnormal [Unknown]
  - Systemic infection [Unknown]
  - Dyspnoea [Unknown]
  - Chest pain [Unknown]
  - Anaemia [Unknown]
  - Atrial fibrillation [Unknown]
  - Arrhythmia [Unknown]
  - Pulmonary embolism [Unknown]
  - Acute respiratory failure [Unknown]
